FAERS Safety Report 20789389 (Version 5)
Quarter: 2022Q2

REPORT INFORMATION
  Report Type: Other
  Country: LB (occurrence: LB)
  Receive Date: 20220505
  Receipt Date: 20220613
  Transmission Date: 20220721
  Serious: Yes (Hospitalization, Other)
  Sender: FDA-Public Use
  Company Number: LB-002147023-NVSC2022LB096906

PATIENT
  Age: 60 Year
  Sex: Male
  Weight: 60 kg

DRUGS (7)
  1. LUCENTIS [Suspect]
     Active Substance: RANIBIZUMAB
     Indication: Diabetic retinal oedema
     Dosage: 10 MG/ML
     Route: 050
     Dates: start: 2019
  2. NEBIVOLOL [Concomitant]
     Active Substance: NEBIVOLOL
     Indication: Product used for unknown indication
     Dosage: UNK
     Route: 065
  3. BUMETANIDE [Concomitant]
     Active Substance: BUMETANIDE
     Indication: Product used for unknown indication
     Route: 065
  4. MICARDIS [Concomitant]
     Active Substance: TELMISARTAN
     Indication: Product used for unknown indication
     Route: 065
  5. ALLOPURINOL [Concomitant]
     Active Substance: ALLOPURINOL
     Indication: Product used for unknown indication
     Route: 065
  6. GLICLAZIDE [Concomitant]
     Active Substance: GLICLAZIDE
     Indication: Product used for unknown indication
     Route: 065
  7. LINAGLIPTIN [Concomitant]
     Active Substance: LINAGLIPTIN
     Indication: Product used for unknown indication
     Dosage: UNK
     Route: 065

REACTIONS (25)
  - Pericardial effusion [Recovered/Resolved]
  - Cataract [Not Recovered/Not Resolved]
  - Myocardial infarction [Unknown]
  - Renal disorder [Recovering/Resolving]
  - Eye haemorrhage [Recovered/Resolved]
  - Blindness unilateral [Not Recovered/Not Resolved]
  - Vision blurred [Unknown]
  - Vitreous floaters [Unknown]
  - Cardiac failure congestive [Unknown]
  - Dyspnoea [Unknown]
  - Chest discomfort [Unknown]
  - Pulmonary oedema [Unknown]
  - Decreased appetite [Unknown]
  - Hyperglycaemia [Unknown]
  - Fatigue [Unknown]
  - Vomiting [Unknown]
  - Gait disturbance [Unknown]
  - Blood creatinine increased [Unknown]
  - Chest pain [Unknown]
  - Eye pain [Unknown]
  - Intraocular pressure increased [Unknown]
  - Hypertension [Recovered/Resolved]
  - Blood glucose increased [Recovered/Resolved]
  - Product supply issue [Unknown]
  - Product dose omission issue [Unknown]

NARRATIVE: CASE EVENT DATE: 20200101
